FAERS Safety Report 7753736-9 (Version None)
Quarter: 2011Q3

REPORT INFORMATION
  Report Type: 
  Country: None (occurrence: None)
  Receive Date: 20110915
  Receipt Date: 20110901
  Transmission Date: 20111222
  Serious: Yes (Other)
  Sender: FDA-Public Use
  Company Number: US-BAYER-2011-081754

PATIENT
  Age: 54 Year
  Sex: Female

DRUGS (1)
  1. ASPIRIN [Suspect]
     Indication: BACK PAIN
     Dosage: 4 DF, ONCE
     Route: 048
     Dates: start: 20110831, end: 20110831

REACTIONS (1)
  - EPISTAXIS [None]
